FAERS Safety Report 5453458-3 (Version None)
Quarter: 2007Q3

REPORT INFORMATION
  Report Type: 
  Country: None (occurrence: None)
  Receive Date: 20070913
  Receipt Date: 20070904
  Transmission Date: 20080115
  Serious: Yes (Hospitalization)
  Sender: FDA-Public Use
  Company Number: 2007-02953

PATIENT
  Age: 73 Year
  Sex: Male

DRUGS (14)
  1. VELCADE [Suspect]
     Indication: MULTIPLE MYELOMA
     Dosage: 1.30 MG/M2, UNK, IV BOLUS
     Route: 040
     Dates: start: 20061211, end: 20070205
  2. VORINOSTAT (SUBEROYLANILIDE HYDROXAMIC ACID) ORAL DRUG UNSPECIFIED FOR [Suspect]
     Indication: MULTIPLE MYELOMA
     Dosage: 200.00 MG UNK ORAL
     Route: 048
     Dates: start: 20061211, end: 20070207
  3. ANZEMET [Concomitant]
  4. AVELOX [Concomitant]
  5. ENALAPRIL MALEATE [Concomitant]
  6. FAMVIR [Concomitant]
  7. FLOMAX [Concomitant]
  8. FLUCONAZOLE [Concomitant]
  9. FOLIC ACID [Concomitant]
  10. HYDROCHLOROTHIAZIDE [Concomitant]
  11. PHENERGAN [Concomitant]
  12. TOPROL-XL [Concomitant]
  13. XALATAN [Concomitant]
  14. ZOFRAN [Concomitant]

REACTIONS (9)
  - ASTHENIA [None]
  - DIZZINESS POSTURAL [None]
  - FATIGUE [None]
  - HYPOPHOSPHATAEMIA [None]
  - HYPOTENSION [None]
  - LETHARGY [None]
  - MALAISE [None]
  - ORTHOSTATIC HYPOTENSION [None]
  - THROMBOCYTOPENIA [None]
